FAERS Safety Report 7653193-7 (Version None)
Quarter: 2011Q3

REPORT INFORMATION
  Report Type: 
  Country: None (occurrence: None)
  Receive Date: 20110802
  Receipt Date: 20110802
  Transmission Date: 20111222
  Serious: No
  Sender: FDA-Public Use
  Company Number: None

PATIENT
  Sex: Male

DRUGS (1)
  1. ZOCOR [Suspect]
     Indication: DYSLIPIDAEMIA
     Dosage: 80MG QHS PO (DURATION: A YEAR AND A HALF MAYBE)
     Route: 048

REACTIONS (2)
  - MUSCULAR WEAKNESS [None]
  - ABASIA [None]
